FAERS Safety Report 14557469 (Version 1)
Quarter: 2018Q1

REPORT INFORMATION
  Report Type: Spontaneous
  Country: US (occurrence: US)
  Receive Date: 20180221
  Receipt Date: 20180221
  Transmission Date: 20180509
  Serious: Yes (Hospitalization, Other)
  Sender: FDA-Public Use
  Company Number: US-PFIZER INC-2018070538

PATIENT
  Age: 69 Year
  Sex: Female

DRUGS (1)
  1. CLINDAMYCIN HCL [Suspect]
     Active Substance: CLINDAMYCIN HYDROCHLORIDE
     Indication: CELLULITIS
     Dosage: 300 MG 1 TIMES PER 8 HOURS

REACTIONS (2)
  - Acute generalised exanthematous pustulosis [Recovered/Resolved]
  - Respiratory failure [Recovered/Resolved with Sequelae]
